FAERS Safety Report 8416409-5 (Version None)
Quarter: 2012Q2

REPORT INFORMATION
  Report Type: 
  Country: None (occurrence: None)
  Receive Date: 20120606
  Receipt Date: 20120526
  Transmission Date: 20120825
  Serious: Yes (Other)
  Sender: FDA-Public Use
  Company Number: CA-ELI_LILLY_AND_COMPANY-CA201205009285

PATIENT
  Age: 76 Year
  Sex: Female

DRUGS (10)
  1. COZAAR [Concomitant]
  2. NAPROXIN                           /00256201/ [Concomitant]
  3. PERCOCET [Concomitant]
  4. SOFLAX [Concomitant]
  5. LEVOTHYROXINE SODIUM [Concomitant]
  6. FORTEO [Suspect]
     Indication: OSTEOPOROSIS
     Dosage: 20 UG, QD
     Route: 058
     Dates: start: 20110604
  7. FORTEO [Suspect]
     Dosage: 20 UG, QD
     Route: 058
  8. RABEPRAZOLE SODIUM [Concomitant]
  9. LIPITOR [Concomitant]
  10. OXYCONTIN [Concomitant]

REACTIONS (2)
  - INFECTION [None]
  - THERAPEUTIC PRODUCT INEFFECTIVE [None]
